FAERS Safety Report 21137185 (Version 1)
Quarter: 2022Q3

REPORT INFORMATION
  Report Type: Spontaneous
  Country: US (occurrence: US)
  Receive Date: 20220727
  Receipt Date: 20220727
  Transmission Date: 20221027
  Serious: Yes (Other)
  Sender: FDA-Public Use
  Company Number: US-SANOFI-01201201

PATIENT
  Sex: Female

DRUGS (1)
  1. ALLEGRA [Suspect]
     Active Substance: FEXOFENADINE HYDROCHLORIDE
     Dosage: 1 DF, QD
     Dates: start: 202206

REACTIONS (5)
  - Macular degeneration [Unknown]
  - Corneal dystrophy [Unknown]
  - Cataract [Unknown]
  - Irritability [Unknown]
  - Visual impairment [Unknown]
